FAERS Safety Report 4309621-8 (Version None)
Quarter: 2004Q1

REPORT INFORMATION
  Report Type: 
  Country: None (occurrence: None)
  Receive Date: 20040302
  Receipt Date: 20040223
  Transmission Date: 20041129
  Serious: Yes (Other)
  Sender: FDA-Public Use
  Company Number: WAES 0402USA01939

PATIENT
  Age: 61 Year
  Sex: Female

DRUGS (3)
  1. MODURETIC 5-50 [Suspect]
     Indication: ESSENTIAL HYPERTENSION
     Route: 048
     Dates: start: 19980101, end: 20031201
  2. ESTRADERM [Concomitant]
     Dates: start: 19930101, end: 20021201
  3. OPTRUMA [Concomitant]
     Dates: start: 20020101

REACTIONS (1)
  - OTOSCLEROSIS [None]
